FAERS Safety Report 13339872 (Version 3)
Quarter: 2017Q1

REPORT INFORMATION
  Report Type: Spontaneous
  Country: DK (occurrence: DK)
  Receive Date: 20170315
  Receipt Date: 20170325
  Transmission Date: 20170428
  Serious: Yes (Hospitalization)
  Sender: FDA-Public Use
  Company Number: PHHY2017DK033083

PATIENT
  Age: 72 Year
  Sex: Male

DRUGS (3)
  1. REMIFENTANIL [Interacting]
     Active Substance: REMIFENTANIL
     Indication: ANAESTHESIA
     Route: 042
  2. DONEPEZIL. [Suspect]
     Active Substance: DONEPEZIL
     Indication: DEMENTIA
     Route: 065
  3. PROPOFOL. [Interacting]
     Active Substance: PROPOFOL
     Indication: GENERAL ANAESTHESIA
     Route: 042

REACTIONS (3)
  - Drug interaction [Recovered/Resolved]
  - Sinus bradycardia [Recovered/Resolved]
  - Cardiac arrest [Recovered/Resolved]
